FAERS Safety Report 10182656 (Version 1)
Quarter: 2014Q2

REPORT INFORMATION
  Report Type: Spontaneous
  Country: US (occurrence: None)
  Receive Date: 20140519
  Receipt Date: 20140519
  Transmission Date: 20141212
  Serious: Yes (Other)
  Sender: FDA-Public Use
  Company Number: None

PATIENT
  Age: 50 Year
  Sex: Female
  Weight: 99.79 kg

DRUGS (2)
  1. NICORETTE [Suspect]
     Indication: EX-TOBACCO USER
     Dosage: TRYING 2 BRANDS
     Dates: start: 201308
  2. NORVASC [Concomitant]

REACTIONS (5)
  - Blister [None]
  - Rash [None]
  - Pyrexia [None]
  - Aphthous stomatitis [None]
  - Nasal disorder [None]
